FAERS Safety Report 6767327-X (Version None)
Quarter: 2010Q2

REPORT INFORMATION
  Report Type: 
  Country: None (occurrence: None)
  Receive Date: 20100614
  Receipt Date: 20100604
  Transmission Date: 20101027
  Serious: Yes (Other)
  Sender: FDA-Public Use
  Company Number: US-ASTRAZENECA-2010SE25882

PATIENT
  Sex: Female

DRUGS (4)
  1. ATENOLOL [Suspect]
     Route: 065
  2. ZOLOFT [Suspect]
     Route: 065
  3. BENICAR HCT [Suspect]
     Route: 065
  4. PRISTIQ [Suspect]
     Route: 065

REACTIONS (2)
  - BLOOD PRESSURE INCREASED [None]
  - SOMNOLENCE [None]
